FAERS Safety Report 9588427 (Version 1)
Quarter: 2013Q4

REPORT INFORMATION
  Report Type: Spontaneous
  Country: US (occurrence: US)
  Receive Date: 20131003
  Receipt Date: 20131003
  Transmission Date: 20140711
  Serious: No
  Sender: FDA-Public Use
  Company Number: US-AMGEN-USASP2012064191

PATIENT
  Sex: Female

DRUGS (11)
  1. ENBREL [Suspect]
     Indication: RHEUMATOID ARTHRITIS
     Dosage: 25 MG, 2 TIMES/WK
     Route: 058
  2. REGLAN                             /00041901/ [Concomitant]
     Dosage: 10 MG, UNK
  3. METHOTREXATE [Concomitant]
     Dosage: 2.5 MG, UNK
  4. FOLIC ACID [Concomitant]
     Dosage: 1 MG, UNK
  5. XANAX [Concomitant]
     Dosage: 0.25 MG, UNK
  6. MOBIC [Concomitant]
     Dosage: 15 MG, UNK
  7. HYDROCODONE/APAP [Concomitant]
     Dosage: 10-325 MG
  8. CYMBALTA [Concomitant]
     Dosage: 20 MG, UNK
  9. SIMVASTATIN [Concomitant]
     Dosage: 40 MG, UNK
  10. LANSOPRAZOLE [Concomitant]
     Dosage: 15 MG,ODT
  11. PREDNISONE [Concomitant]
     Dosage: 10 MG, PRN

REACTIONS (3)
  - Pain [Recovering/Resolving]
  - Malaise [Recovering/Resolving]
  - Gastroenteritis viral [Recovering/Resolving]
